FAERS Safety Report 6696091-8 (Version None)
Quarter: 2010Q2

REPORT INFORMATION
  Report Type: 
  Country: None (occurrence: None)
  Receive Date: 20100426
  Receipt Date: 20100421
  Transmission Date: 20101027
  Serious: Yes (Death)
  Sender: FDA-Public Use
  Company Number: PHBS2008TR04392

PATIENT
  Age: 35 Year
  Sex: Female

DRUGS (3)
  1. OXYTOCIN [Suspect]
     Indication: HAEMORRHAGE
     Dosage: 1 MU/MIN
  2. OXYTOCIN [Suspect]
     Dosage: 1 MU/MIN EVRY 30 TO 60 MIN
  3. OXYTOCIN [Suspect]
     Dosage: 7 MU/MIN AFTER 4 HOURS

REACTIONS (15)
  - CARDIAC ARREST [None]
  - CIRCULATORY COLLAPSE [None]
  - DRUG EXPOSURE DURING PREGNANCY [None]
  - HAEMATOCRIT DECREASED [None]
  - HEART RATE INCREASED [None]
  - HYPERHIDROSIS [None]
  - HYPOTENSION [None]
  - HYSTERECTOMY [None]
  - LAPAROTOMY [None]
  - NORMAL NEWBORN [None]
  - RESPIRATORY RATE DECREASED [None]
  - TACHYCARDIA [None]
  - UTERINE DISORDER [None]
  - UTERINE HAEMATOMA [None]
  - UTERINE RUPTURE [None]
